FAERS Safety Report 18940687 (Version 5)
Quarter: 2021Q3

REPORT INFORMATION
  Report Type: Spontaneous
  Country: JP (occurrence: JP)
  Receive Date: 20210225
  Receipt Date: 20210706
  Transmission Date: 20211014
  Serious: Yes (Hospitalization, Other)
  Sender: FDA-Public Use
  Company Number: JP-PFIZER INC-2021195214

PATIENT
  Age: 3 Year
  Sex: Female
  Weight: 15 kg

DRUGS (3)
  1. FOSTOIN [Suspect]
     Active Substance: FOSPHENYTOIN SODIUM
     Indication: EPILEPSY
     Dosage: 14.4 MG/KG
     Route: 042
     Dates: start: 20210125, end: 20210125
  2. FOSTOIN [Suspect]
     Active Substance: FOSPHENYTOIN SODIUM
     Indication: SEDATION
     Dosage: 337.5 MG
     Route: 042
  3. FOSTOIN [Suspect]
     Active Substance: FOSPHENYTOIN SODIUM
     Indication: PROPHYLAXIS
     Dosage: 5.8 MG, ONCE A DAY
     Route: 042
     Dates: start: 20210126, end: 20210127

REACTIONS (4)
  - Altered state of consciousness [Recovered/Resolved]
  - Restlessness [Recovered/Resolved]
  - Anticonvulsant drug level increased [Recovered/Resolved]
  - Vomiting [Recovered/Resolved]

NARRATIVE: CASE EVENT DATE: 20210127
